FAERS Safety Report 12420986 (Version 2)
Quarter: 2016Q3

REPORT INFORMATION
  Report Type: Report from Study
  Country: NZ (occurrence: NZ)
  Receive Date: 20160531
  Receipt Date: 20160727
  Transmission Date: 20161109
  Serious: Yes (Hospitalization, Other)
  Sender: FDA-Public Use
  Company Number: NZ-KADMON PHARMACEUTICALS, LLC-KAD201605-001963

PATIENT
  Sex: Female

DRUGS (6)
  1. TRAMADOL. [Suspect]
     Active Substance: TRAMADOL
     Indication: BACK PAIN
  2. CODEINE [Concomitant]
     Active Substance: CODEINE
  3. VIEKIRA PAK [Suspect]
     Active Substance: DASABUVIR\OMBITASVIR\PARITAPREVIR\RITONAVIR
     Indication: HEPATITIS C
     Dosage: TABLET
     Route: 048
     Dates: start: 20160426, end: 20160516
  4. RIBAVIRIN. [Suspect]
     Active Substance: RIBAVIRIN
     Indication: HEPATITIS C
     Dates: start: 2016, end: 2016
  5. NORTRIPTYLINE [Concomitant]
     Active Substance: NORTRIPTYLINE
  6. PAROXETINE. [Concomitant]
     Active Substance: PAROXETINE

REACTIONS (11)
  - Hallucination [Unknown]
  - Nausea [Unknown]
  - Blood bilirubin increased [Unknown]
  - International normalised ratio increased [Unknown]
  - Gastrointestinal disorder [Unknown]
  - Somnolence [Unknown]
  - Drug interaction [Unknown]
  - Insomnia [Unknown]
  - Hypophagia [Unknown]
  - Hepatic failure [Unknown]
  - Adverse drug reaction [Unknown]
